FAERS Safety Report 8185278-3 (Version None)
Quarter: 2012Q1

REPORT INFORMATION
  Report Type: 
  Country: None (occurrence: None)
  Receive Date: 20120305
  Receipt Date: 20120224
  Transmission Date: 20120608
  Serious: Yes (Disabling, Other)
  Sender: FDA-Public Use
  Company Number: PHEH2010US03502

PATIENT
  Sex: Female

DRUGS (18)
  1. ZELNORM                                 /USA/ [Concomitant]
  2. PRILOSEC [Concomitant]
  3. FENTANYL [Concomitant]
  4. PREMARIN [Concomitant]
  5. PERCOCET [Concomitant]
     Dosage: 325 MG, UNK
  6. DURAGESIC-100 [Concomitant]
     Dosage: 100 UG, UNK
  7. DARVOCET-N 50 [Concomitant]
     Dosage: 100 MG, UNK
  8. MORPHINE SULFATE [Concomitant]
  9. OXYCODONE HCL [Concomitant]
  10. PROTONIX [Concomitant]
  11. RADIATION THERAPY [Concomitant]
  12. SKELAXIN [Concomitant]
  13. LORAZEPAM [Concomitant]
  14. ZOMETA [Suspect]
     Indication: NEOPLASM MALIGNANT
     Dosage: 4 MG, QMO
     Route: 042
     Dates: start: 20060601, end: 20080601
  15. REGLAN [Concomitant]
  16. ALTACE [Concomitant]
  17. ATIVAN [Concomitant]
  18. LYRICA [Concomitant]

REACTIONS (49)
  - INFECTION [None]
  - IMPAIRED HEALING [None]
  - BRONCHITIS [None]
  - CONTUSION [None]
  - OSTEOLYSIS [None]
  - DIVERTICULUM [None]
  - ABDOMINAL PAIN [None]
  - COSTOCHONDRITIS [None]
  - DIZZINESS [None]
  - DECREASED APPETITE [None]
  - LUMBAR SPINAL STENOSIS [None]
  - RIB FRACTURE [None]
  - GASTROOESOPHAGEAL REFLUX DISEASE [None]
  - DEFORMITY [None]
  - ANXIETY [None]
  - RADICULOPATHY [None]
  - ARTHRALGIA [None]
  - ULCER [None]
  - DYSPNOEA EXERTIONAL [None]
  - OSTEONECROSIS OF JAW [None]
  - PAIN [None]
  - EMOTIONAL DISTRESS [None]
  - FIBROUS DYSPLASIA OF JAW [None]
  - NASAL TURBINATE ABNORMALITY [None]
  - OSTEOPOROSIS [None]
  - SPONDYLOLISTHESIS [None]
  - PARAESTHESIA [None]
  - KYPHOSIS [None]
  - GENERAL PHYSICAL HEALTH DETERIORATION [None]
  - TOOTH IMPACTED [None]
  - HYPERTENSION [None]
  - COMPRESSION FRACTURE [None]
  - HAEMORRHOIDS [None]
  - BACK PAIN [None]
  - INTERVERTEBRAL DISC DEGENERATION [None]
  - OSTEOSCLEROSIS [None]
  - BONE LOSS [None]
  - CONSTIPATION [None]
  - LOOSE TOOTH [None]
  - TOOTH ABSCESS [None]
  - THIRST [None]
  - IMPAIRED GASTRIC EMPTYING [None]
  - HYPOAESTHESIA [None]
  - DENTAL CARIES [None]
  - HYPERLIPIDAEMIA [None]
  - ATELECTASIS [None]
  - SINUSITIS [None]
  - NASAL SEPTUM DEVIATION [None]
  - NECK PAIN [None]
